FAERS Safety Report 12939674 (Version 1)
Quarter: 2016Q4

REPORT INFORMATION
  Report Type: Spontaneous
  Country: DE (occurrence: DE)
  Receive Date: 20161115
  Receipt Date: 20161115
  Transmission Date: 20170207
  Serious: Yes (Other)
  Sender: FDA-Public Use
  Company Number: DE-PFIZER INC-2016527716

PATIENT
  Sex: Female

DRUGS (3)
  1. ZELDOX [Suspect]
     Active Substance: ZIPRASIDONE
     Dosage: UNK
  2. BIPERIDEN [Concomitant]
     Active Substance: BIPERIDEN
     Dosage: UNK
  3. TRIMIPRAMIN [Concomitant]
     Active Substance: TRIMIPRAMINE MALEATE
     Dosage: UNK

REACTIONS (1)
  - Gaze palsy [Unknown]
